FAERS Safety Report 4823385-0 (Version None)
Quarter: 2005Q4

REPORT INFORMATION
  Report Type: 
  Country: None (occurrence: None)
  Receive Date: 20051107
  Receipt Date: 20051028
  Transmission Date: 20060501
  Serious: Yes (Other)
  Sender: FDA-Public Use
  Company Number: 2005-10-0229

PATIENT
  Age: 82 Year
  Sex: Male

DRUGS (2)
  1. EULEXIN [Suspect]
     Indication: PROSTATE CANCER
     Dosage: 750 MG QD ORAL
     Route: 048
     Dates: start: 19900401, end: 19910415
  2. DECAPEPTYL [Concomitant]

REACTIONS (4)
  - INTERSTITIAL LUNG DISEASE [None]
  - LUNG INFILTRATION [None]
  - PULMONARY FIBROSIS [None]
  - RESTRICTIVE PULMONARY DISEASE [None]
